FAERS Safety Report 4718549-0 (Version None)
Quarter: 2005Q3

REPORT INFORMATION
  Report Type: 
  Country: None (occurrence: None)
  Receive Date: 20050719
  Receipt Date: 20050507
  Transmission Date: 20060218
  Serious: Yes (Other)
  Sender: FDA-Public Use
  Company Number: 2004121817

PATIENT
  Age: 78 Year
  Sex: Male

DRUGS (9)
  1. CELEBREX [Suspect]
     Indication: ARTHRITIS
     Dosage: 200 MG (200 MG, 1 IN 1 D), ORAL
     Route: 048
     Dates: start: 19990309
  2. CELEBREX [Suspect]
     Indication: OSTEOARTHRITIS
     Dosage: 200 MG (200 MG, 1 IN 1 D), ORAL
     Route: 048
     Dates: start: 19990309
  3. CELEBREX [Suspect]
     Indication: RHEUMATOID ARTHRITIS
     Dosage: 200 MG (200 MG, 1 IN 1 D), ORAL
     Route: 048
     Dates: start: 19990309
  4. METOPROLOL [Concomitant]
  5. LISINOPRIL [Concomitant]
  6. ATORVASTATIN CALCIUM [Concomitant]
  7. TAMSULOSIN HYDROCHLORIDE [Concomitant]
  8. CLOPIDOGREL BISULFATE [Concomitant]
  9. ASPIRIN [Concomitant]

REACTIONS (3)
  - BLOOD CHOLESTEROL ABNORMAL [None]
  - BLOOD PRESSURE FLUCTUATION [None]
  - MYOCARDIAL INFARCTION [None]
